FAERS Safety Report 8503779-2 (Version None)
Quarter: 2012Q3

REPORT INFORMATION
  Report Type: 
  Country: None (occurrence: None)
  Receive Date: 20120711
  Receipt Date: 20120703
  Transmission Date: 20120928
  Serious: Yes (Death)
  Sender: FDA-Public Use
  Company Number: US-009507513-1207USA000808

PATIENT

DRUGS (8)
  1. INSULIN [Concomitant]
  2. IMODIUM [Concomitant]
  3. PEGASYS [Suspect]
     Indication: HEPATITIS C
  4. VICTRELIS [Suspect]
     Indication: HEPATITIS C
     Dosage: 800 MG, TID
     Route: 048
     Dates: start: 20120517
  5. REBETOL [Suspect]
     Dosage: UNK
  6. GABAPENTIN [Concomitant]
  7. CELEXA [Concomitant]
  8. COMPAZINE [Concomitant]

REACTIONS (2)
  - DEATH [None]
  - BLOOD GLUCOSE INCREASED [None]
